FAERS Safety Report 8020965 (Version 2)
Quarter: 2013Q2

REPORT INFORMATION
  Report Type: Spontaneous
  Country: US (occurrence: US)
  Receive Date: 20110705
  Receipt Date: 20130611
  Transmission Date: 20140414
  Serious: Yes (Death)
  Sender: FDA-Public Use
  Company Number: US-SANOFI-AVENTIS-2011SA041637

PATIENT
  Age: 51 Year
  Sex: Male

DRUGS (6)
  1. AMIODARONE HYDROCHLORIDE [Suspect]
     Indication: PRODUCT USED FOR UNKNOWN INDICATION
     Dosage: UNSPECIFIED CHRONIC EXPOSURE, CONTINUOUS OR REPEATED EXPOSURE OCCURING OVER GREATER THAN 8 HOURS
     Route: 048
     Dates: start: 2008, end: 2008
  2. QUETIAPINE FUMARATE [Suspect]
     Indication: PRODUCT USED FOR UNKNOWN INDICATION
     Dosage: UNSPECIFIED CHRONIC EXPOSURE, CONTINUOUS OR REPEATED EXPOSURE OCCURING OVER GREATER THAN 8 HOURS
     Route: 048
     Dates: start: 2008, end: 2008
  3. OXYCODONE [Suspect]
     Indication: PRODUCT USED FOR UNKNOWN INDICATION
     Dosage: UNSPECIFIED CHRONIC EXPOSURE, CONTINUOUS OR REPEATED EXPOSURE OCCURING OVER GREATER THAN 8 HOURS
     Route: 048
     Dates: start: 2008, end: 2008
  4. ZOLPIDEM TARTRATE [Suspect]
     Indication: PRODUCT USED FOR UNKNOWN INDICATION
     Dosage: UNSPECIFIED CHRONIC EXPOSURE, CONTINUOUS OR REPEATED EXPOSURE OCCURING OVER GREATER THAN 8 HOURS
     Route: 048
     Dates: start: 2008, end: 2008
  5. TRAZODONE HYDROCHLORIDE [Suspect]
     Indication: PRODUCT USED FOR UNKNOWN INDICATION
     Dosage: UNSPECIFIED CHRONIC EXPOSURE, CONTINUOUS OR REPEATED EXPOSURE OCCURING OVER GREATER THAN 8 HOURS
     Route: 048
     Dates: start: 2008, end: 2008
  6. OXYCOCET [Suspect]
     Indication: PRODUCT USED FOR UNKNOWN INDICATION
     Dosage: UNSPECIFIED CHRONIC EXPOSURE, CONTINUOUS OR REPEATED EXPOSURE OCCURING OVER GREATER THAN 8 HOURS
     Route: 048
     Dates: start: 2008, end: 2008

REACTIONS (3)
  - Completed suicide [Fatal]
  - Cardiac arrest [Fatal]
  - Respiratory arrest [Fatal]
